FAERS Safety Report 4449940-8 (Version None)
Quarter: 2004Q3

REPORT INFORMATION
  Report Type: 
  Country: None (occurrence: None)
  Receive Date: 20040915
  Receipt Date: 20040902
  Transmission Date: 20050211
  Serious: Yes (Other)
  Sender: FDA-Public Use
  Company Number: FR-GLAXOSMITHKLINE-B0344642A

PATIENT
  Age: 80 Year
  Sex: Male

DRUGS (5)
  1. EPIVIR [Suspect]
     Indication: HEPATITIS B SURFACE ANTIGEN POSITIVE
     Dosage: 10MG PER DAY
     Route: 048
     Dates: start: 20040806
  2. MOPRAL [Concomitant]
  3. LASIX [Concomitant]
  4. KAYEXALATE [Concomitant]
  5. CORTICOSTEROIDS TYPE UNKNOWN [Concomitant]
     Indication: NEPHROPATHY
     Dosage: 60MG PER DAY

REACTIONS (4)
  - ARTHRALGIA [None]
  - CATHETER SEPSIS [None]
  - MEDICAL DEVICE COMPLICATION [None]
  - THROMBOCYTOPENIA [None]
